FAERS Safety Report 22794158 (Version 2)
Quarter: 2023Q4

REPORT INFORMATION
  Report Type: Spontaneous
  Country: CA (occurrence: CA)
  Receive Date: 20230807
  Receipt Date: 20231004
  Transmission Date: 20240110
  Serious: Yes (Hospitalization)
  Sender: FDA-Public Use
  Company Number: CA-PFIZER INC-202300220663

PATIENT
  Age: 31 Year
  Sex: Female
  Weight: 118 kg

DRUGS (17)
  1. RUXIENCE [Suspect]
     Active Substance: RITUXIMAB-PVVR
     Indication: Granulomatosis with polyangiitis
     Dosage: 1 G, DAY 1 AND DAY 14.
     Route: 042
     Dates: start: 20230612, end: 20230626
  2. RUXIENCE [Suspect]
     Active Substance: RITUXIMAB-PVVR
     Dosage: 1 G, DAY 1 AND DAY 14.
     Route: 042
     Dates: start: 20230626
  3. FOLIC ACID [Concomitant]
     Active Substance: FOLIC ACID
     Dosage: 5 MG, FREQUENCY UNKNOWN
     Route: 065
     Dates: start: 20230605
  4. IMURAN [Concomitant]
     Active Substance: AZATHIOPRINE
     Dosage: 500 MG, FREQUENCY UNKNOWN
     Route: 065
     Dates: start: 20230605
  5. LANSOPRAZOLE [Concomitant]
     Active Substance: LANSOPRAZOLE
     Dosage: 30 MG, FREQUENCY UNKNOWN
     Route: 065
     Dates: start: 20230605
  6. METHOTREXATE SODIUM [Concomitant]
     Active Substance: METHOTREXATE SODIUM
     Dosage: 25 MG, PO, EVERY MONDAY
     Route: 048
     Dates: start: 202306
  7. METHOTREXATE SODIUM [Concomitant]
     Active Substance: METHOTREXATE SODIUM
     Dosage: 25 MG, FREQUENCY: UNKNOWN
     Route: 065
     Dates: start: 20230605
  8. METHOTREXATE SODIUM [Concomitant]
     Active Substance: METHOTREXATE SODIUM
     Dosage: 20 MG, WEEKLY
     Route: 048
  9. MORPHINE [Concomitant]
     Active Substance: MORPHINE
     Dosage: 1 DF, 2.5 MG FREQUENCY UNKNOWN
     Route: 065
  10. PREDNISONE [Concomitant]
     Active Substance: PREDNISONE
     Dosage: 50 MG, DAILY, STARTED IN HOSPITAL AT 50MG, PO,OD
     Route: 065
     Dates: start: 202306
  11. PREDNISONE [Concomitant]
     Active Substance: PREDNISONE
     Dosage: 50 MG, 2X/DAY, INCREASED TO 50MG,PO,BID
     Route: 065
     Dates: start: 20230611
  12. PREDNISONE [Concomitant]
     Active Substance: PREDNISONE
     Dosage: 40 MG, 1X/DAY
  13. PREDNISONE [Concomitant]
     Active Substance: PREDNISONE
     Dosage: 20 MG, 1X/DAY, FURTHER REDUCTION TO 50 A DAY
  14. TINZAPARIN [Concomitant]
     Active Substance: TINZAPARIN
     Dosage: 1 DF, 8000 UNITS FREQUENCY UNKNOWN
     Route: 065
     Dates: start: 20230605
  15. METHYLPREDNISOLONE [Concomitant]
     Active Substance: METHYLPREDNISOLONE
     Dosage: 50 MG, DAILY, STARTED IN HOSPITAL AT 50MG, PO,OD.
     Route: 048
     Dates: start: 202306
  16. METHYLPREDNISOLONE [Concomitant]
     Active Substance: METHYLPREDNISOLONE
     Dosage: 50 MG, 2X/DAY, INCREASED TO 50MG,PO,BID
     Route: 048
     Dates: start: 20230611
  17. VITAMIN D NOS [Concomitant]
     Active Substance: VITAMIN D NOS
     Dosage: UNK

REACTIONS (3)
  - Vasculitis [Unknown]
  - Nasal disorder [Not Recovered/Not Resolved]
  - Off label use [Unknown]

NARRATIVE: CASE EVENT DATE: 20230101
